FAERS Safety Report 13380818 (Version 1)
Quarter: 2017Q1

REPORT INFORMATION
  Report Type: Spontaneous
  Country: ZA (occurrence: ZA)
  Receive Date: 20170329
  Receipt Date: 20170329
  Transmission Date: 20170429
  Serious: Yes (Hospitalization)
  Sender: FDA-Public Use
  Company Number: ZA-DRREDDYS-SAF/SAF/17/0087947

PATIENT
  Age: 39 Year
  Sex: Female

DRUGS (9)
  1. ELTROXIN [Concomitant]
     Active Substance: LEVOTHYROXINE
     Indication: HYPOPARATHYROIDISM
     Route: 048
     Dates: start: 20161012
  2. ASPAVOR [Concomitant]
     Active Substance: ATORVASTATIN
     Indication: BLOOD CHOLESTEROL
     Route: 048
     Dates: start: 20161012
  3. METHYLPHENIDATE. [Concomitant]
     Active Substance: METHYLPHENIDATE
     Indication: ATTENTION DEFICIT/HYPERACTIVITY DISORDER
     Route: 048
     Dates: start: 20161012
  4. TWYNSTA [Concomitant]
     Active Substance: AMLODIPINE BESYLATE\TELMISARTAN
     Indication: HYPERTENSION
     Dosage: 80/5 MG
     Route: 048
     Dates: start: 20161012
  5. TRANQIPAM [Concomitant]
     Indication: STRESS
     Route: 048
     Dates: start: 20161012
  6. DOPAQUEL 25 MG FILM COATED TABLET [Suspect]
     Active Substance: QUETIAPINE
     Indication: DEPRESSION
     Route: 048
     Dates: start: 20161012
  7. VALDOXANE [Concomitant]
     Indication: DEPRESSION
     Route: 048
     Dates: start: 20161012
  8. YAZ [Concomitant]
     Active Substance: DROSPIRENONE\ETHINYL ESTRADIOL
     Indication: CONTRACEPTION
     Route: 048
     Dates: start: 20161012
  9. URBANOL [Suspect]
     Active Substance: CLOBAZAM
     Indication: STRESS
     Route: 048
     Dates: start: 20161012

REACTIONS (2)
  - Overdose [Unknown]
  - Loss of consciousness [Recovered/Resolved]

NARRATIVE: CASE EVENT DATE: 20170312
